FAERS Safety Report 19157393 (Version 1)
Quarter: 2021Q2

REPORT INFORMATION
  Report Type: Spontaneous
  Country: US (occurrence: US)
  Receive Date: 20210419
  Receipt Date: 20210419
  Transmission Date: 20210717
  Serious: Yes (Disabling)
  Sender: FDA-Public Use
  Company Number: None

PATIENT
  Age: 35 Year
  Sex: Male
  Weight: 74.25 kg

DRUGS (3)
  1. PROPECIA [Suspect]
     Active Substance: FINASTERIDE
     Indication: ALOPECIA
     Dosage: ?          QUANTITY:1 TABLET(S);?
     Route: 048
  2. B?12 VITAMINS [Concomitant]
  3. AMINO ACIDS SUPPLEMENTS [Concomitant]

REACTIONS (8)
  - Premature ejaculation [None]
  - Suicidal ideation [None]
  - Apathy [None]
  - Alopecia [None]
  - Libido decreased [None]
  - Hair colour changes [None]
  - Erectile dysfunction [None]
  - Depression [None]

NARRATIVE: CASE EVENT DATE: 20170630
